FAERS Safety Report 10241297 (Version 1)
Quarter: 2014Q2

REPORT INFORMATION
  Report Type: Spontaneous
  Country: US (occurrence: US)
  Receive Date: 20140617
  Receipt Date: 20140617
  Transmission Date: 20141212
  Serious: No
  Sender: FDA-Public Use
  Company Number: US-PFIZER INC-2014162099

PATIENT
  Age: 63 Year
  Sex: Female
  Weight: 132 kg

DRUGS (24)
  1. AROMASIN [Suspect]
     Indication: BREAST CANCER FEMALE
     Dosage: 25 MG, 1X/DAY
     Route: 048
     Dates: start: 201309
  2. LEXAPRO [Suspect]
     Indication: DEPRESSION
     Dosage: 20 MG, 1X/DAY
     Route: 048
  3. COMPAZINE [Concomitant]
     Indication: NAUSEA
     Dosage: 5 MG, EVERY 6 HOURS AS NEEDED
     Route: 048
  4. CARDURA [Concomitant]
     Indication: HYPERTENSION
     Dosage: 2 MG, 1X/DAY
     Route: 048
  5. ADVAIR [Concomitant]
     Indication: ASTHMA
     Dosage: FLUTICASONE 500MCG, SALMETEROL 50MCG, 1 PUFFS EVERY 12 HOURS
  6. COMBIVENT [Concomitant]
     Dosage: IPRATROPIUM 18MCG, ALBUTEROL 103MCG, 2 PUFFS EVERY 6 HOURS AS NEEDED
     Route: 055
  7. COMBIVENT [Concomitant]
     Dosage: IPRATROPIUM 20MCG, ALBUTEROL 100MCG, 1 PUFFS EVERY 6 HOURS
     Route: 055
  8. GLUCOPHAGE [Concomitant]
     Indication: TYPE 2 DIABETES MELLITUS
     Dosage: 500 MG, 2X/DAY
     Route: 048
  9. SINGULAIR [Concomitant]
     Dosage: 10 MG, 1X/DAY
     Route: 048
  10. K-DUR [Concomitant]
     Dosage: 20 MEQ, 1X/DAY
     Route: 048
  11. KLOR-CON [Concomitant]
     Dosage: 20 MEQ, 1X/DAY
     Route: 048
  12. DEMADEX [Concomitant]
     Dosage: 40 MG, DAILY
     Route: 048
  13. DIOVAN HCT [Concomitant]
     Dosage: 320MG, 12.5MG, 1DF ONCE DAILY
     Route: 048
  14. CALAN-SR [Concomitant]
     Indication: HYPERTENSION
     Dosage: 240 MG, 2X/DAY
     Route: 048
  15. DICLOFENAC SODIUM [Concomitant]
     Dosage: 100 MG, DAILY
     Route: 048
  16. CATAPRES [Concomitant]
     Indication: HYPERTENSION
     Dosage: 0.3 MG, 2X/DAY
     Route: 048
  17. CATAPRES [Concomitant]
     Dosage: 0.3 MG, PRN
     Route: 048
  18. DUONEB [Concomitant]
     Dosage: IPRATROPIUM 0.5MG, SALBUTAMOL 3 MG, EVERY 6 HOURS AS NEEDED
  19. THEODUR [Concomitant]
     Indication: ASTHMA
     Dosage: 200 MG, 2X/DAY
     Route: 048
  20. HYDROCORTISONE [Concomitant]
     Dosage: 2.5 %, 1X/DAY
  21. PENLAC [Concomitant]
     Indication: NAIL INFECTION
     Dosage: 8 %, DAILY
  22. HYDROCODONE-ACETAMINOPHEN [Concomitant]
     Dosage: HYDROCODONE 5MG, ACETAMINOPHEN 300MG, 6 HOURS AS NEEDED
     Route: 048
  23. PROVENTIL [Concomitant]
     Dosage: 90 UG, 2 PUFFS EVERY 6 HOURS AS NEEDED
     Route: 055
  24. VENTOLIN [Concomitant]
     Dosage: 90 UG, 2 PUFFS EVERY 6 HOURS AS NEEDED
     Route: 055

REACTIONS (1)
  - Vomiting [Recovered/Resolved]
